FAERS Safety Report 4457374-5 (Version None)
Quarter: 2004Q3

REPORT INFORMATION
  Report Type: 
  Country: None (occurrence: None)
  Receive Date: 20040922
  Receipt Date: 20040907
  Transmission Date: 20050211
  Serious: Yes (Hospitalization, Other)
  Sender: FDA-Public Use
  Company Number: USA040977513

PATIENT
  Age: 73 Year
  Sex: Male

DRUGS (1)
  1. CIALIS [Suspect]
     Indication: ERECTILE DYSFUNCTION
     Dosage: 20 MG
     Dates: start: 20040301, end: 20040907

REACTIONS (7)
  - DRUG EFFECT DECREASED [None]
  - HAEMORRHAGE [None]
  - HEADACHE [None]
  - IATROGENIC INJURY [None]
  - INCONTINENCE [None]
  - MUSCLE CRAMP [None]
  - PROCEDURAL COMPLICATION [None]
